FAERS Safety Report 22159478 (Version 1)
Quarter: 2023Q1

REPORT INFORMATION
  Report Type: Report from Study
  Country: CA (occurrence: CA)
  Receive Date: 20230331
  Receipt Date: 20230331
  Transmission Date: 20230418
  Serious: Yes (Other)
  Sender: FDA-Public Use
  Company Number: CA-TAKEDA-2023TUS032853

PATIENT
  Age: 59 Year
  Sex: Female

DRUGS (9)
  1. VEDOLIZUMAB [Suspect]
     Active Substance: VEDOLIZUMAB
     Indication: Colitis ulcerative
     Dosage: 300 MILLIGRAM
     Route: 042
     Dates: start: 20160707
  2. PANTOPRAZOLE MAGNESIUM [Suspect]
     Active Substance: PANTOPRAZOLE MAGNESIUM
     Indication: Product used for unknown indication
     Dosage: 40 MILLIGRAM
     Route: 048
  3. MERCAPTOPURINE [Concomitant]
     Active Substance: MERCAPTOPURINE
     Indication: Colitis ulcerative
     Dosage: UNK
  4. URSODOL [Concomitant]
     Indication: Liver disorder
     Dosage: UNK
     Dates: start: 201402
  5. MAGNESIUM [Concomitant]
     Active Substance: MAGNESIUM
     Dosage: UNK
     Route: 048
     Dates: start: 201512
  6. VITAMIN D3 [Concomitant]
     Active Substance: CHOLECALCIFEROL
     Dosage: UNK
     Route: 048
     Dates: start: 201512
  7. CLONIDINE [Concomitant]
     Active Substance: CLONIDINE
     Dosage: 0.5 MILLIGRAM
     Route: 048
  8. Reactine [Concomitant]
     Dosage: UNK
     Route: 048
  9. CALCIUM\CHOLECALCIFEROL [Concomitant]
     Active Substance: CALCIUM\CHOLECALCIFEROL
     Dosage: UNK
     Route: 048

REACTIONS (1)
  - Bile duct stenosis [Not Recovered/Not Resolved]
